FAERS Safety Report 6447748-5 (Version None)
Quarter: 2009Q4

REPORT INFORMATION
  Report Type: 
  Country: None (occurrence: None)
  Receive Date: 20091120
  Receipt Date: 20091111
  Transmission Date: 20100525
  Serious: Yes (Other)
  Sender: FDA-Public Use
  Company Number: US-BIOGENIDEC-2009BI035096

PATIENT
  Sex: Female

DRUGS (1)
  1. AVONEX [Suspect]
     Indication: MULTIPLE SCLEROSIS
     Route: 030
     Dates: start: 19981002, end: 20041002

REACTIONS (4)
  - COLITIS ULCERATIVE [None]
  - COLON NEOPLASM [None]
  - GASTRIC DISORDER [None]
  - VISUAL IMPAIRMENT [None]
